FAERS Safety Report 15505725 (Version 1)
Quarter: 2018Q4

REPORT INFORMATION
  Report Type: Spontaneous
  Country: US (occurrence: US)
  Receive Date: 20181016
  Receipt Date: 20181016
  Transmission Date: 20190205
  Serious: Yes (Other)
  Sender: FDA-Public Use
  Company Number: US-JAZZ-2018-US-015092

PATIENT
  Age: 3 Year
  Sex: Female

DRUGS (1)
  1. ERWINAZE [Suspect]
     Active Substance: ASPARAGINASE ERWINIA CHRYSANTHEMI
     Indication: ACUTE LYMPHOCYTIC LEUKAEMIA
     Route: 030

REACTIONS (5)
  - Enuresis [Recovered/Resolved]
  - Muscle twitching [Recovered/Resolved]
  - Psychotic disorder [Recovered/Resolved]
  - Ammonia increased [Unknown]
  - Hypoaesthesia [Recovered/Resolved]
